FAERS Safety Report 13109781 (Version 1)
Quarter: 2017Q1

REPORT INFORMATION
  Report Type: Spontaneous
  Country: US (occurrence: US)
  Receive Date: 20170112
  Receipt Date: 20170112
  Transmission Date: 20170428
  Serious: No
  Sender: FDA-Public Use
  Company Number: US-ROCHE-1100847

PATIENT
  Sex: Male

DRUGS (4)
  1. ACTIVASE [Suspect]
     Active Substance: ALTEPLASE
     Indication: ACUTE MYOCARDIAL INFARCTION
     Route: 065
  2. NITROGLYCERIN DRIP [Concomitant]
  3. HEPARIN [Concomitant]
     Active Substance: HEPARIN SODIUM
     Route: 041
  4. ASPIRIN. [Concomitant]
     Active Substance: ASPIRIN

REACTIONS (4)
  - Chest discomfort [Unknown]
  - Vomiting [Unknown]
  - Hypotension [Recovered/Resolved]
  - Heart rate decreased [Not Recovered/Not Resolved]
